FAERS Safety Report 23626085 (Version 1)
Quarter: 2024Q1

REPORT INFORMATION
  Report Type: Spontaneous
  Country: US (occurrence: US)
  Receive Date: 20240313
  Receipt Date: 20240313
  Transmission Date: 20240409
  Serious: No
  Sender: FDA-Public Use
  Company Number: US-ABBVIE-5671489

PATIENT
  Sex: Male
  Weight: 70 kg

DRUGS (1)
  1. BOTOX [Suspect]
     Active Substance: ONABOTULINUMTOXINA
     Indication: Rectal haemorrhage
     Dosage: TIME INTERVAL: AS NECESSARY: UNKNOWN
     Route: 030

REACTIONS (1)
  - Product use in unapproved indication [Unknown]
